FAERS Safety Report 15127464 (Version 1)
Quarter: 2018Q3

REPORT INFORMATION
  Report Type: Spontaneous
  Country: US (occurrence: US)
  Receive Date: 20180710
  Receipt Date: 20180710
  Transmission Date: 20181010
  Serious: No
  Sender: FDA-Public Use
  Company Number: US-ACTELION-A-US2018-172991

PATIENT
  Age: 43 Year
  Sex: Male

DRUGS (4)
  1. VELETRI [Suspect]
     Active Substance: EPOPROSTENOL
     Indication: PULMONARY ARTERIAL HYPERTENSION
     Dosage: 7 NG/KG, PER MIN
     Route: 042
     Dates: end: 201805
  2. TYVASO [Concomitant]
     Active Substance: TREPROSTINIL
     Dosage: 6 BREATHS, QID
  3. VELETRI [Suspect]
     Active Substance: EPOPROSTENOL
     Dosage: 3 NG/KG, PER MIN
     Route: 042
     Dates: start: 20171118
  4. TYVASO [Concomitant]
     Active Substance: TREPROSTINIL
     Dosage: 9 BREATHS, QID

REACTIONS (3)
  - Vomiting [Unknown]
  - Nausea [Unknown]
  - Therapy change [Unknown]

NARRATIVE: CASE EVENT DATE: 201805
